FAERS Safety Report 6931162-X (Version None)
Quarter: 2010Q3

REPORT INFORMATION
  Report Type: 
  Country: None (occurrence: None)
  Receive Date: 20100818
  Receipt Date: 20100810
  Transmission Date: 20110219
  Serious: Yes (Other)
  Sender: FDA-Public Use
  Company Number: CA-AMGEN-KDL284328

PATIENT
  Sex: Female
  Weight: 86.3 kg

DRUGS (3)
  1. ENBREL [Suspect]
     Indication: PSORIATIC ARTHROPATHY
     Dates: start: 20030102, end: 20100427
  2. METHOTREXATE [Concomitant]
     Dates: start: 20090817
  3. CELEBREX [Concomitant]
     Dates: start: 20060425

REACTIONS (5)
  - INJECTION SITE PAIN [None]
  - INTERSTITIAL LUNG DISEASE [None]
  - JOINT STIFFNESS [None]
  - MYOSITIS [None]
  - PULMONARY FIBROSIS [None]
